FAERS Safety Report 5126977-7 (Version None)
Quarter: 2006Q4

REPORT INFORMATION
  Report Type: 
  Country: None (occurrence: None)
  Receive Date: 20061013
  Receipt Date: 20060815
  Transmission Date: 20070319
  Serious: Yes (Death, Other)
  Sender: FDA-Public Use
  Company Number: US-AVENTIS-200616826US

PATIENT
  Sex: Male
  Weight: 95 kg

DRUGS (16)
  1. LANTUS [Suspect]
     Indication: DIABETES MELLITUS NON-INSULIN-DEPENDENT
     Route: 058
  2. NIASPAN [Suspect]
     Indication: HIGH DENSITY LIPOPROTEIN DECREASED
     Route: 048
     Dates: start: 20060611, end: 20060611
  3. NIASPAN [Suspect]
     Indication: BLOOD CHOLESTEROL INCREASED
     Route: 048
     Dates: start: 20060611, end: 20060611
  4. WELLBUTRIN [Suspect]
     Indication: DEPRESSION
     Route: 048
  5. EFFEXOR [Suspect]
     Indication: DEPRESSION
     Route: 048
  6. LORAZEPAM [Suspect]
     Route: 048
  7. TRAZODONE HCL [Suspect]
     Indication: DEPRESSION
     Route: 048
  8. TENORMIN [Suspect]
     Route: 048
  9. LANOXIN [Suspect]
     Route: 048
  10. GLUCOPHAGE [Suspect]
     Indication: DIABETES MELLITUS
     Route: 048
  11. GLUCOTROL XL [Suspect]
     Indication: DIABETES MELLITUS
     Route: 048
  12. ACTOS [Suspect]
     Indication: DIABETES MELLITUS
     Route: 048
  13. TRICOR [Suspect]
     Route: 048
  14. LIPITOR [Suspect]
     Dosage: DOSE: UNK
  15. RISPERDAL [Suspect]
     Route: 048
  16. MULTIVITAMIN [Suspect]
     Dosage: DOSE: UNK

REACTIONS (8)
  - BLOOD GLUCOSE INCREASED [None]
  - CARDIO-RESPIRATORY ARREST [None]
  - DRUG INTERACTION [None]
  - ERYTHEMA [None]
  - FLUSHING [None]
  - MEDICATION ERROR [None]
  - MYOCARDIAL INFARCTION [None]
  - SKIN DISORDER [None]
